FAERS Safety Report 16408333 (Version 2)
Quarter: 2019Q3

REPORT INFORMATION
  Report Type: Spontaneous
  Country: KZ (occurrence: KZ)
  Receive Date: 20190610
  Receipt Date: 20190705
  Transmission Date: 20191004
  Serious: Yes (Death, Other)
  Sender: FDA-Public Use
  Company Number: KZ-PCCINC-2019-PEL-000172

PATIENT

DRUGS (17)
  1. FENTANYL. [Suspect]
     Active Substance: FENTANYL
     Dosage: 50 MKG
     Route: 042
     Dates: start: 20190508
  2. ISOFLURANE. [Suspect]
     Active Substance: ISOFLURANE
     Dosage: 2,0 %VOL
     Dates: start: 20190508, end: 20190508
  3. FENTANYL. [Suspect]
     Active Substance: FENTANYL
     Dosage: 50 MKG
     Route: 042
     Dates: start: 20190508
  4. FENTANYL. [Suspect]
     Active Substance: FENTANYL
     Dosage: 50 MKG
     Route: 042
     Dates: start: 20190508
  5. FENTANYL. [Suspect]
     Active Substance: FENTANYL
     Dosage: 50 MKG
     Route: 042
     Dates: start: 20190508
  6. ARDUAN [Suspect]
     Active Substance: PIPECURONIUM BROMIDE
     Indication: INDUCTION OF ANAESTHESIA
     Dosage: 2 MILLIGRAM BOLUS
     Route: 042
     Dates: start: 20190508, end: 20190508
  7. PROPOFOL. [Suspect]
     Active Substance: PROPOFOL
     Indication: INDUCTION OF ANAESTHESIA
     Dosage: 1%-15 ML (150 MG)
     Route: 042
     Dates: start: 20190508
  8. FENTANYL. [Suspect]
     Active Substance: FENTANYL
     Dosage: 50 MKG
     Route: 042
     Dates: start: 20190508
  9. SODIUM CHLORIDE. [Concomitant]
     Active Substance: SODIUM CHLORIDE
     Indication: PRODUCT USED FOR UNKNOWN INDICATION
     Dosage: 0.9 %
     Route: 042
     Dates: start: 20190508
  10. ATROPIN                            /00002801/ [Concomitant]
     Active Substance: ATROPINE
     Indication: OPHTHALMOLOGICAL EXAMINATION
     Dosage: 2 DROPS
     Route: 065
     Dates: start: 20190508
  11. ISOFLURANE. [Suspect]
     Active Substance: ISOFLURANE
     Indication: ANAESTHESIA
     Dosage: 4,5 - 2.5 %VOL
     Dates: start: 20190508, end: 20190508
  12. ESMERON [Suspect]
     Active Substance: ROCURONIUM BROMIDE
     Indication: INDUCTION OF ANAESTHESIA
     Dosage: 20 MILLIGRAM
     Route: 065
     Dates: start: 20190508
  13. FENTANYL. [Suspect]
     Active Substance: FENTANYL
     Indication: INDUCTION OF ANAESTHESIA
     Dosage: 1 MKG/KG
     Route: 042
     Dates: start: 20190508
  14. FENTANYL. [Suspect]
     Active Substance: FENTANYL
     Dosage: 50 MKG
     Route: 042
     Dates: start: 20190508
  15. FENTANYL. [Suspect]
     Active Substance: FENTANYL
     Dosage: 50 MKG
     Route: 042
     Dates: start: 20190508
  16. RELANIUM                           /00011502/ [Concomitant]
     Active Substance: CHLORDIAZEPOXIDE HYDROCHLORIDE
     Indication: ANAESTHESIA
     Dosage: 0.2 MG/KG/H
     Route: 042
     Dates: start: 20190508
  17. FENTANYL. [Suspect]
     Active Substance: FENTANYL
     Dosage: 50 MKG
     Route: 042
     Dates: start: 20190508

REACTIONS (35)
  - Cardiac failure [Fatal]
  - Coagulopathy [Fatal]
  - Renal failure [Fatal]
  - Hypotension [Fatal]
  - Blood creatine phosphokinase increased [Fatal]
  - Disseminated intravascular coagulation [Fatal]
  - Sinus tachycardia [Fatal]
  - Tricuspid valve incompetence [Fatal]
  - Areflexia [Fatal]
  - Hyperglycaemia [Fatal]
  - Cardiac arrest [Fatal]
  - Supraventricular tachycardia [Fatal]
  - Hyperlactacidaemia [Fatal]
  - Anaemia [Fatal]
  - Heart sounds abnormal [Fatal]
  - Cardiovascular insufficiency [Fatal]
  - Pulmonary valve incompetence [Fatal]
  - Vasospasm [Fatal]
  - Hyperthermia malignant [Fatal]
  - Mouth haemorrhage [Fatal]
  - Mitral valve incompetence [Fatal]
  - Respiratory failure [Fatal]
  - Hypercapnia [Fatal]
  - Muscle rigidity [Fatal]
  - Poisoning [Fatal]
  - Epistaxis [Fatal]
  - Pleural effusion [Fatal]
  - Metabolic acidosis [Fatal]
  - Electrolyte imbalance [Fatal]
  - Hyperkalaemia [Fatal]
  - Liver disorder [Fatal]
  - Anuria [Fatal]
  - Pulse abnormal [Fatal]
  - Pyrexia [Fatal]
  - Hypocalcaemia [Fatal]

NARRATIVE: CASE EVENT DATE: 20190508
